FAERS Safety Report 6290050-5 (Version None)
Quarter: 2009Q3

REPORT INFORMATION
  Report Type: 
  Country: None (occurrence: None)
  Receive Date: 20090730
  Receipt Date: 20081103
  Transmission Date: 20100115
  Serious: No
  Sender: FDA-Public Use
  Company Number: US-BRISTOL-MYERS SQUIBB COMPANY-14392393

PATIENT
  Sex: Female

DRUGS (1)
  1. COUMADIN [Suspect]

REACTIONS (7)
  - DRY SKIN [None]
  - ERYTHEMA [None]
  - HAIR TEXTURE ABNORMAL [None]
  - INTERNATIONAL NORMALISED RATIO ABNORMAL [None]
  - PULSE ABNORMAL [None]
  - VARICOSE VEIN [None]
  - VEIN DISCOLOURATION [None]
